FAERS Safety Report 14272298 (Version 2)
Quarter: 2018Q3

REPORT INFORMATION
  Report Type: Spontaneous
  Country: JP (occurrence: JP)
  Receive Date: 20171211
  Receipt Date: 20180803
  Transmission Date: 20181010
  Serious: Yes (Other)
  Sender: FDA-Public Use
  Company Number: JP-OTSUKA-010191

PATIENT
  Age: 1 Day

DRUGS (5)
  1. ABILIFY [Suspect]
     Active Substance: ARIPIPRAZOLE
     Dosage: 3 MG, BID
     Route: 064
     Dates: start: 20090716, end: 20090729
  2. ABILIFY [Suspect]
     Active Substance: ARIPIPRAZOLE
     Indication: PRODUCT USED FOR UNKNOWN INDICATION
     Dosage: 3 MG, QD
     Route: 064
     Dates: start: 20090319, end: 20090715
  3. ABILIFY [Suspect]
     Active Substance: ARIPIPRAZOLE
     Dosage: 6 MG, QD
     Route: 064
     Dates: start: 20100309
  4. DEPAS [Concomitant]
     Active Substance: ETIZOLAM
     Indication: PRODUCT USED FOR UNKNOWN INDICATION
     Dosage: 1 MG, QD
     Route: 064
     Dates: start: 20090319, end: 20100825
  5. ABILIFY [Suspect]
     Active Substance: ARIPIPRAZOLE
     Dosage: 3 MG, TID
     Route: 064
     Dates: start: 20090730, end: 20100308

REACTIONS (2)
  - Breech presentation [Unknown]
  - Foetal exposure during pregnancy [Unknown]
